FAERS Safety Report 4335987-9 (Version None)
Quarter: 2004Q2

REPORT INFORMATION
  Report Type: 
  Country: None (occurrence: None)
  Receive Date: 20040406
  Receipt Date: 20040325
  Transmission Date: 20050107
  Serious: Yes (Hospitalization, Other)
  Sender: FDA-Public Use
  Company Number: HQWYE108925MAR04

PATIENT
  Age: 69 Year
  Sex: Female

DRUGS (11)
  1. CORDAREX     (AMIODARONE ) [Suspect]
     Indication: ATRIAL FIBRILLATION
     Dosage: 200 MG 1X PER 1 DAY ORAL
     Route: 048
     Dates: start: 20020501
  2. CONCOR (BISOPROLOL, TABLET) [Suspect]
     Indication: CORONARY ARTERY DISEASE
     Dosage: 2.5 MG 1X PER 1 DAY ORAL
     Route: 048
     Dates: start: 20020501, end: 20031212
  3. DIGITOXIN TAB [Suspect]
     Indication: ATRIAL FIBRILLATION
     Dosage: 0.07 MG 1X PER 1 DAY ORAL
     Route: 048
     Dates: start: 20020501, end: 20031212
  4. AERODUR (TERBUTALINE SULFATE) [Concomitant]
  5. AQUAPHOR (XIPAMIDE) [Concomitant]
  6. RAMIPRIL [Concomitant]
  7. ISCOVER (CLOPIDOGREL SULFATE) [Concomitant]
  8. PANTOZOL (PANTOPRAZOLE) [Concomitant]
  9. SIMVASTATIN [Concomitant]
  10. SYMBICORT (BUDESONIDE/FORMOTEROL FUMARATE) [Concomitant]
  11. TOREM (TORASEMIDE) [Concomitant]

REACTIONS (6)
  - BRADYCARDIA [None]
  - CARDIOACTIVE DRUG LEVEL INCREASED [None]
  - DRUG INTERACTION [None]
  - FALL [None]
  - OVERDOSE [None]
  - SYNCOPE [None]
